FAERS Safety Report 21803255 (Version 2)
Quarter: 2023Q4

REPORT INFORMATION
  Report Type: Report from Study
  Country: US (occurrence: US)
  Receive Date: 20230101
  Receipt Date: 20231201
  Transmission Date: 20240109
  Serious: Yes (Other)
  Sender: FDA-Public Use
  Company Number: US-ABBVIE-4254324

PATIENT
  Sex: Female

DRUGS (1)
  1. HUMIRA [Suspect]
     Active Substance: ADALIMUMAB
     Indication: Crohn^s disease
     Route: 058
     Dates: start: 20171103

REACTIONS (8)
  - Breast mass [Unknown]
  - Ophthalmic migraine [Unknown]
  - Large intestine polyp [Unknown]
  - Breast mass [Unknown]
  - Retinal degeneration [Unknown]
  - Retinal tear [Unknown]
  - Mass [Unknown]
  - Amenorrhoea [Unknown]

NARRATIVE: CASE EVENT DATE: 20210101
